FAERS Safety Report 5345601-1 (Version None)
Quarter: 2007Q2

REPORT INFORMATION
  Report Type: 
  Country: None (occurrence: None)
  Receive Date: 20070605
  Receipt Date: 20070129
  Transmission Date: 20071010
  Serious: No
  Sender: FDA-Public Use
  Company Number: US-ASTRAZENECA-2007UW01821

PATIENT
  Age: 86 Year
  Sex: Female

DRUGS (6)
  1. PRILOSEC [Suspect]
     Indication: STOMACH DISCOMFORT
     Route: 048
     Dates: start: 20060101
  2. COUMADIN [Concomitant]
  3. FUROSEMIDE [Concomitant]
  4. TOPROL-XL [Concomitant]
  5. DIGITEX [Concomitant]
  6. POTASSIUM CHLORIDE [Concomitant]

REACTIONS (2)
  - NAUSEA [None]
  - SNEEZING [None]
